FAERS Safety Report 6686703-7 (Version None)
Quarter: 2010Q2

REPORT INFORMATION
  Report Type: 
  Country: None (occurrence: None)
  Receive Date: 20100419
  Receipt Date: 20100414
  Transmission Date: 20101027
  Serious: Yes (Other)
  Sender: FDA-Public Use
  Company Number: US-ELI_LILLY_AND_COMPANY-US201004003841

PATIENT
  Sex: Female

DRUGS (1)
  1. HUMALOG MIX 75/25 [Suspect]
     Indication: DIABETES MELLITUS
     Dosage: 25 U, 2/D
     Dates: start: 20090101

REACTIONS (3)
  - CEREBROVASCULAR ACCIDENT [None]
  - INJECTION SITE MASS [None]
  - POOR QUALITY DRUG ADMINISTERED [None]
